FAERS Safety Report 6333237-5 (Version None)
Quarter: 2009Q3

REPORT INFORMATION
  Report Type: 
  Country: None (occurrence: None)
  Receive Date: 20090826
  Receipt Date: 20090808
  Transmission Date: 20100115
  Serious: Yes (Hospitalization, Other)
  Sender: FDA-Public Use
  Company Number: ENT 2009-0134

PATIENT
  Age: 58 Year
  Sex: Male

DRUGS (6)
  1. COMTAN [Suspect]
     Indication: DRUG EFFECT DECREASED
     Dosage: ORAL
     Route: 048
  2. TRIHEXYPHENIDYL HCL [Concomitant]
  3. TOFRANIL [Concomitant]
  4. PAROXETINE HCL [Concomitant]
  5. CABERGOLINE [Concomitant]
  6. PRAMIPEXOLE DIHYDROCHLORIDE [Concomitant]

REACTIONS (1)
  - DYSPHAGIA [None]
